FAERS Safety Report 8825000 (Version 3)
Quarter: 2015Q3

REPORT INFORMATION
  Report Type: Report from Study
  Country: US (occurrence: US)
  Receive Date: 20121004
  Receipt Date: 20150708
  Transmission Date: 20151125
  Serious: Yes (Death, Hospitalization, Other)
  Sender: FDA-Public Use
  Company Number: US-ROCHE-1129879

PATIENT
  Sex: Male
  Weight: 93 kg

DRUGS (25)
  1. TYLENOL [Concomitant]
     Active Substance: ACETAMINOPHEN
     Route: 048
  2. ASPIRIN. [Concomitant]
     Active Substance: ASPIRIN
  3. NEUPOGEN [Concomitant]
     Active Substance: FILGRASTIM
     Route: 058
  4. CLEOCIN [Concomitant]
     Active Substance: CLINDAMYCIN PHOSPHATE
  5. BACTRIM [Suspect]
     Active Substance: SULFAMETHOXAZOLE\TRIMETHOPRIM
     Indication: PRODUCT USED FOR UNKNOWN INDICATION
     Route: 065
  6. DECADRON [Concomitant]
     Active Substance: DEXAMETHASONE
     Route: 042
  7. COUMADIN [Concomitant]
     Active Substance: WARFARIN SODIUM
     Route: 065
  8. RITUXAN [Suspect]
     Active Substance: RITUXIMAB
     Indication: CHRONIC LYMPHOCYTIC LEUKAEMIA
     Route: 065
     Dates: start: 20060321
  9. NEULASTA [Suspect]
     Active Substance: PEGFILGRASTIM
     Indication: PRODUCT USED FOR UNKNOWN INDICATION
     Route: 065
  10. BENADRYL [Concomitant]
     Active Substance: DIPHENHYDRAMINE HYDROCHLORIDE
     Route: 048
  11. FLUDARABINE [Concomitant]
     Active Substance: FLUDARABINE PHOSPHATE
     Route: 042
  12. ARANESP [Concomitant]
     Active Substance: DARBEPOETIN ALFA
     Route: 065
  13. TARCEVA [Suspect]
     Active Substance: ERLOTINIB HYDROCHLORIDE
     Indication: PRODUCT USED FOR UNKNOWN INDICATION
     Route: 065
  14. AUGMENTIN [Concomitant]
     Active Substance: AMOXICILLIN\CLAVULANATE POTASSIUM
  15. EMEND [Concomitant]
     Active Substance: APREPITANT
     Route: 048
  16. PROCRIT [Concomitant]
     Active Substance: ERYTHROPOIETIN
  17. BACTRIM [Suspect]
     Active Substance: SULFAMETHOXAZOLE\TRIMETHOPRIM
     Dosage: TWICE A DAY 3 TIMES A WEEK.
     Route: 065
  18. FLOMAX (UNITED STATES) [Concomitant]
  19. CYTOXAN [Concomitant]
     Active Substance: CYCLOPHOSPHAMIDE
     Route: 042
  20. CYTOXAN [Concomitant]
     Active Substance: CYCLOPHOSPHAMIDE
     Route: 042
  21. ALLOPURINOL. [Concomitant]
     Active Substance: ALLOPURINOL
     Route: 065
  22. LIPITOR [Concomitant]
     Active Substance: ATORVASTATIN CALCIUM
  23. LEVAQUIN [Concomitant]
     Active Substance: LEVOFLOXACIN
     Route: 048
  24. ALOXI [Concomitant]
     Active Substance: PALONOSETRON HYDROCHLORIDE
     Route: 042
  25. FAMVIR (UNITED STATES) [Concomitant]
     Route: 058

REACTIONS (25)
  - Tendon discomfort [Unknown]
  - Hyperkeratosis [Unknown]
  - Pain [Unknown]
  - Blood testosterone decreased [Unknown]
  - Death [Fatal]
  - Pancytopenia [Unknown]
  - Thrombophlebitis [Unknown]
  - Neutropenia [Unknown]
  - Anaemia [Unknown]
  - Splenomegaly [Unknown]
  - Pyrexia [Unknown]
  - Thrombosis [Unknown]
  - Anxiety [Unknown]
  - Sinus congestion [Unknown]
  - Depression [Unknown]
  - Prostatitis [Unknown]
  - Oedema peripheral [Unknown]
  - Cough [Unknown]
  - Somnolence [Unknown]
  - External ear cellulitis [Unknown]
  - Tenderness [Unknown]
  - Malaise [Unknown]
  - Paraesthesia [Unknown]
  - Rhinitis allergic [Unknown]
  - Cyst [Unknown]
